FAERS Safety Report 5888856-7 (Version None)
Quarter: 2008Q3

REPORT INFORMATION
  Report Type: 
  Country: None (occurrence: None)
  Receive Date: 20080919
  Receipt Date: 20080910
  Transmission Date: 20090109
  Serious: Yes (Other)
  Sender: FDA-Public Use
  Company Number: PHHY2008FR20084

PATIENT
  Sex: Female
  Weight: 49 kg

DRUGS (6)
  1. EXELON [Suspect]
     Indication: DEMENTIA ALZHEIMER'S TYPE
     Dosage: 4.6 MG/DAY
     Route: 061
     Dates: start: 20080611
  2. EXELON [Suspect]
     Dosage: 9.5 MG/DAY
  3. PROPOXYPHENE HCL AND ACETAMINOPHEN [Concomitant]
     Indication: ARTHRITIS
     Dosage: 500 M/DAY
     Route: 048
  4. DAFALGAN [Concomitant]
     Indication: ARTHRITIS
     Dosage: 500 MG/DAY
  5. DITROPAN [Concomitant]
     Indication: ARTHRITIS
     Dosage: 5 MG DAILY
  6. FUROSEMIDE [Concomitant]
     Indication: HYPERTENSION
     Dosage: 20 MG DAILY
     Route: 048

REACTIONS (4)
  - APPLICATION SITE ERYTHEMA [None]
  - DERMATITIS BULLOUS [None]
  - RASH [None]
  - URTICARIA [None]
